FAERS Safety Report 20119272 (Version 3)
Quarter: 2022Q1

REPORT INFORMATION
  Report Type: Report from Study
  Country: JP (occurrence: JP)
  Receive Date: 20211126
  Receipt Date: 20220212
  Transmission Date: 20220423
  Serious: Yes (Hospitalization)
  Sender: FDA-Public Use
  Company Number: JP-CHUGAI-2021025336

PATIENT
  Age: 59 Year
  Sex: Female
  Weight: 46 kg

DRUGS (9)
  1. EMICIZUMAB [Suspect]
     Active Substance: EMICIZUMAB
     Indication: Acquired haemophilia
     Dosage: UNK
     Route: 058
     Dates: start: 20210517, end: 20210517
  2. EMICIZUMAB [Suspect]
     Active Substance: EMICIZUMAB
     Dosage: UNK
     Route: 058
     Dates: start: 20210518, end: 20210518
  3. EMICIZUMAB [Suspect]
     Active Substance: EMICIZUMAB
     Dosage: 1.5 MILLIGRAM/KILOGRAM, ONCE/WEEK
     Route: 058
     Dates: start: 20210525
  4. FEBUXOSTAT [Concomitant]
     Active Substance: FEBUXOSTAT
     Indication: Hyperuricaemia
     Dosage: 40 MILLIGRAM, QD
     Route: 048
  5. BISOPROLOL FUMARATE [Concomitant]
     Active Substance: BISOPROLOL FUMARATE
     Indication: Cardiac failure congestive
     Dosage: UNK, QD
     Route: 048
     Dates: start: 20200213
  6. KETOPROFEN [Concomitant]
     Active Substance: KETOPROFEN
     Indication: Back pain
     Dosage: UNK
     Route: 061
     Dates: start: 20200213
  7. ACETAMINOPHEN [Concomitant]
     Active Substance: ACETAMINOPHEN
     Indication: Back pain
     Dosage: 600 MILLIGRAM
     Route: 048
     Dates: start: 20200212
  8. NEXIUM [Concomitant]
     Active Substance: ESOMEPRAZOLE MAGNESIUM
     Indication: Decreased appetite
     Dosage: 20 MILLIGRAM, QD
     Route: 048
     Dates: start: 20211026
  9. ETIZOLAM [Concomitant]
     Active Substance: ETIZOLAM
     Indication: Insomnia
     Dosage: 1 MILLIGRAM, QD
     Route: 048
     Dates: start: 20211026

REACTIONS (1)
  - Basedow^s disease [Recovering/Resolving]

NARRATIVE: CASE EVENT DATE: 20210920
